FAERS Safety Report 8869900 (Version 1)
Quarter: 2012Q4

REPORT INFORMATION
  Report Type: Spontaneous
  Country: US (occurrence: None)
  Receive Date: 20121025
  Receipt Date: 20121025
  Transmission Date: 20130627
  Serious: Yes (Hospitalization)
  Sender: FDA-Public Use
  Company Number: None

PATIENT
  Age: 75 Year
  Sex: Female
  Weight: 67.4 kg

DRUGS (2)
  1. GEMCITABINE [Suspect]
     Indication: PANCREATIC CANCER
     Dosage: 1700 mg Weekly x2 doses intravenous
     Route: 042
     Dates: start: 20120515, end: 20120724
  2. INVESTIGATIONAL DRUG [Suspect]
     Indication: PANCREATIC CANCER
     Dosage: 18.48 mg Weekly x2 doses intravenous
     Route: 042
     Dates: start: 20120515, end: 20120724

REACTIONS (3)
  - Choledocholithotomy [None]
  - Post procedural complication [None]
  - Liver function test abnormal [None]
